FAERS Safety Report 6093772-4 (Version None)
Quarter: 2009Q1

REPORT INFORMATION
  Report Type: 
  Country: None (occurrence: None)
  Receive Date: 20090223
  Receipt Date: 20090223
  Transmission Date: 20090719
  Serious: Yes (Other)
  Sender: FDA-Public Use
  Company Number: None

PATIENT
  Sex: Female

DRUGS (2)
  1. FEXOFENADINE [Suspect]
     Indication: MULTIPLE ALLERGIES
     Dosage: 60MG BID PO SEVERAL DAYS
     Route: 048
     Dates: start: 20080825, end: 20081126
  2. FEXOFENADINE [Suspect]
     Indication: MULTIPLE ALLERGIES
     Dosage: 60MG BID PO SEVERAL DAYS
     Route: 048
     Dates: start: 20090207, end: 20090218

REACTIONS (3)
  - PRODUCT QUALITY ISSUE [None]
  - RASH [None]
  - URTICARIA [None]
